FAERS Safety Report 6759452-4 (Version None)
Quarter: 2010Q2

REPORT INFORMATION
  Report Type: 
  Country: None (occurrence: None)
  Receive Date: 20100607
  Receipt Date: 20100531
  Transmission Date: 20101027
  Serious: No
  Sender: FDA-Public Use
  Company Number: JP-MERCK-1004USA04826

PATIENT
  Age: 59 Year
  Sex: Male
  Weight: 75 kg

DRUGS (14)
  1. JANUVIA [Suspect]
     Indication: DIABETES MELLITUS
     Route: 048
     Dates: start: 20100322, end: 20100402
  2. BEZATOL SR [Concomitant]
     Indication: HYPERLIPIDAEMIA
     Route: 048
     Dates: start: 20090804, end: 20100402
  3. BEZATOL SR [Concomitant]
     Route: 048
     Dates: start: 20100401
  4. SEIROGAN [Suspect]
     Indication: DIARRHOEA
     Route: 048
     Dates: end: 20100402
  5. DOXAZOSIN MESYLATE [Concomitant]
     Indication: HYPERTENSION
     Route: 048
     Dates: start: 20100309, end: 20100402
  6. DOXAZOSIN MESYLATE [Concomitant]
     Route: 048
     Dates: start: 20100401
  7. METFORMIN HCL [Concomitant]
     Indication: DIABETES MELLITUS
     Route: 048
     Dates: start: 20081210, end: 20100402
  8. DIOVAN [Concomitant]
     Indication: HYPERTENSION
     Route: 048
     Dates: start: 20100401
  9. DIOVAN [Concomitant]
     Route: 048
     Dates: start: 20090114, end: 20100402
  10. METFORMIN HCL [Concomitant]
     Route: 048
     Dates: start: 20100401
  11. SEIBULE [Concomitant]
     Indication: DIABETES MELLITUS
     Route: 048
     Dates: start: 20090602, end: 20100321
  12. SEIBULE [Concomitant]
     Route: 048
     Dates: start: 20100401
  13. ADALAT CC [Concomitant]
     Indication: HYPERTENSION
     Route: 048
     Dates: start: 20090318, end: 20100402
  14. ADALAT CC [Concomitant]
     Route: 048
     Dates: start: 20100401

REACTIONS (2)
  - DYSGEUSIA [None]
  - HYPOAESTHESIA [None]
